FAERS Safety Report 8031599-4 (Version None)
Quarter: 2012Q1

REPORT INFORMATION
  Report Type: 
  Country: None (occurrence: None)
  Receive Date: 20120109
  Receipt Date: 20111227
  Transmission Date: 20120608
  Serious: Yes (Hospitalization)
  Sender: FDA-Public Use
  Company Number: IT-MYLANLABS-2012S1000070

PATIENT
  Age: 63 Year
  Sex: Female

DRUGS (5)
  1. TICLOPIDINE HCL [Suspect]
     Route: 048
     Dates: start: 20111116, end: 20111129
  2. TICLOPIDINE HCL [Suspect]
     Indication: CAROTID ARTERIOSCLEROSIS
     Route: 048
     Dates: start: 20111116, end: 20111129
  3. ZESTORETIC [Concomitant]
     Indication: PRODUCT USED FOR UNKNOWN INDICATION
     Dosage: 20+12.5 MG TABLET
     Route: 048
  4. SIMESTAT [Concomitant]
     Indication: PRODUCT USED FOR UNKNOWN INDICATION
  5. LEVOTHYROXINE SODIUM [Concomitant]
     Indication: PRODUCT USED FOR UNKNOWN INDICATION
     Route: 048

REACTIONS (5)
  - RASH ERYTHEMATOUS [None]
  - AGRANULOCYTOSIS [None]
  - ANURIA [None]
  - CONFUSIONAL STATE [None]
  - PYREXIA [None]
